FAERS Safety Report 6270829-6 (Version None)
Quarter: 2009Q3

REPORT INFORMATION
  Report Type: 
  Country: None (occurrence: None)
  Receive Date: 20090716
  Receipt Date: 20090706
  Transmission Date: 20100115
  Serious: Yes (Other)
  Sender: FDA-Public Use
  Company Number: PHHY2009CA27723

PATIENT
  Age: 24 Year
  Sex: Female

DRUGS (5)
  1. CARBAMAZEPINE [Suspect]
     Indication: EPILEPSY
     Dosage: 2100 MG, UNK
  2. CARBAMAZEPINE [Suspect]
     Dosage: 600 MG, BID
  3. PHENYTOIN [Concomitant]
     Indication: EPILEPSY
  4. VALPROIC ACID [Concomitant]
     Indication: EPILEPSY
     Dosage: 1500 MG
  5. CLOBAZAM [Concomitant]
     Indication: EPILEPSY
     Dosage: 15 MG IN DIVIDED DOSES

REACTIONS (9)
  - ATAXIA [None]
  - BALANCE DISORDER [None]
  - DEPRESSED LEVEL OF CONSCIOUSNESS [None]
  - GAIT DISTURBANCE [None]
  - GAZE PALSY [None]
  - HEADACHE [None]
  - NAUSEA [None]
  - OCULOGYRIC CRISIS [None]
  - VOMITING [None]
